FAERS Safety Report 24229403 (Version 1)
Quarter: 2024Q3

REPORT INFORMATION
  Report Type: Spontaneous
  Country: TW (occurrence: None)
  Receive Date: 20240820
  Receipt Date: 20240820
  Transmission Date: 20241017
  Serious: Yes (Life-Threatening)
  Sender: ASTRAZENECA
  Company Number: 2024A188504

PATIENT
  Age: 25646 Day
  Sex: Female

DRUGS (2)
  1. LYNPARZA [Suspect]
     Active Substance: OLAPARIB
     Indication: HRD gene mutation assay positive
     Route: 048
     Dates: start: 20231010
  2. AVASTIN [Concomitant]
     Active Substance: BEVACIZUMAB
     Dates: start: 20230621

REACTIONS (1)
  - Anaemia [Recovered/Resolved]

NARRATIVE: CASE EVENT DATE: 20231001
